FAERS Safety Report 6542906-3 (Version None)
Quarter: 2010Q1

REPORT INFORMATION
  Report Type: 
  Country: None (occurrence: None)
  Receive Date: 20100120
  Receipt Date: 20100113
  Transmission Date: 20100710
  Serious: Yes (Hospitalization)
  Sender: FDA-Public Use
  Company Number: JP-ELI_LILLY_AND_COMPANY-JP201001002715

PATIENT
  Age: 78 Year
  Sex: Female

DRUGS (1)
  1. GEMZAR [Suspect]
     Indication: LUNG ADENOCARCINOMA RECURRENT
     Dosage: 1000 MG/M2, UNK
     Route: 042
     Dates: start: 20090301

REACTIONS (4)
  - DYSPNOEA [None]
  - HYPOXIA [None]
  - PNEUMOCYSTIS JIROVECI PNEUMONIA [None]
  - PYREXIA [None]
